FAERS Safety Report 7289668-2 (Version None)
Quarter: 2011Q1

REPORT INFORMATION
  Report Type: 
  Country: None (occurrence: None)
  Receive Date: 20110214
  Receipt Date: 20110203
  Transmission Date: 20110831
  Serious: Yes (Hospitalization)
  Sender: FDA-Public Use
  Company Number: US-BIOGENIDEC-2011BI004367

PATIENT
  Age: 40 Year
  Sex: Female
  Weight: 100 kg

DRUGS (3)
  1. AVONEX [Suspect]
     Route: 030
     Dates: start: 20030101, end: 20040101
  2. AVONEX [Suspect]
     Indication: MULTIPLE SCLEROSIS
     Route: 030
     Dates: start: 20001001, end: 20030101
  3. AVONEX [Suspect]
     Route: 030
     Dates: start: 20040101

REACTIONS (5)
  - WOUND [None]
  - INTERNATIONAL NORMALISED RATIO INCREASED [None]
  - OXYGEN SATURATION DECREASED [None]
  - SEPSIS [None]
  - HYPOTENSION [None]
